FAERS Safety Report 12367860 (Version 1)
Quarter: 2016Q2

REPORT INFORMATION
  Report Type: Spontaneous
  Country: US (occurrence: US)
  Receive Date: 20160513
  Receipt Date: 20160513
  Transmission Date: 20160815
  Serious: Yes (Other)
  Sender: FDA-Public Use
  Company Number: US-SMITH AND NEPHEW, INC-2016SMT00396

PATIENT
  Age: 52 Year
  Sex: Male
  Weight: 104.31 kg

DRUGS (4)
  1. INSULIN (UNSPECIFIED) [Concomitant]
  2. REGRANEX [Suspect]
     Active Substance: BECAPLERMIN
     Indication: WOUND
     Dosage: UNK
     Dates: start: 201604, end: 2016
  3. ENALAPRIL MALEATE. [Concomitant]
     Active Substance: ENALAPRIL MALEATE
     Dosage: UNK, 1X/DAY
  4. INHALERS (UNSPECIFIED) [Concomitant]
     Indication: CHRONIC OBSTRUCTIVE PULMONARY DISEASE
     Dosage: UNK, AS NEEDED

REACTIONS (5)
  - Osteomyelitis [Unknown]
  - Rash papular [Recovered/Resolved]
  - Swelling [Recovered/Resolved]
  - Inappropriate schedule of drug administration [Unknown]
  - Application site pruritus [Unknown]

NARRATIVE: CASE EVENT DATE: 201604
